FAERS Safety Report 4793833-3 (Version None)
Quarter: 2005Q4

REPORT INFORMATION
  Report Type: 
  Country: None (occurrence: None)
  Receive Date: 20051011
  Receipt Date: 20050929
  Transmission Date: 20060501
  Serious: Yes (Hospitalization)
  Sender: FDA-Public Use
  Company Number: JP-SANOFI-SYNTHELABO-A01200506755

PATIENT
  Age: 65 Year
  Sex: Female

DRUGS (3)
  1. OXALIPLATIN [Suspect]
     Dosage: UNKNOWN DOSE
  2. CALCIUM LEVOFOLINATE [Concomitant]
     Dosage: DOSE NOT SPECIFIED
  3. FLUOROURACIL [Concomitant]
     Dosage: DOSE NOT SPECIFIED

REACTIONS (1)
  - DEPRESSED LEVEL OF CONSCIOUSNESS [None]
